FAERS Safety Report 5341457-1 (Version None)
Quarter: 2007Q2

REPORT INFORMATION
  Report Type: 
  Country: None (occurrence: None)
  Receive Date: 20070601
  Receipt Date: 20070522
  Transmission Date: 20071010
  Serious: Yes (Hospitalization)
  Sender: FDA-Public Use
  Company Number: PHRM2007FR01494

PATIENT
  Age: 68 Year
  Sex: Female
  Weight: 67 kg

DRUGS (3)
  1. TRILEPTAL [Suspect]
     Indication: EPILEPSY
     Dosage: 450 MG, BID
     Route: 048
     Dates: end: 20070221
  2. ASASANTIN - SLOW RELEASE [Concomitant]
     Dosage: 2 DF/DAY
     Route: 048
     Dates: end: 20070223
  3. KEPPRA [Suspect]
     Indication: EPILEPSY
     Dosage: 500 MG, QD
     Route: 048
     Dates: start: 20070222, end: 20070223

REACTIONS (9)
  - AGITATION [None]
  - HALLUCINATION, AUDITORY [None]
  - HALLUCINATION, VISUAL [None]
  - HEADACHE [None]
  - HYPONATRAEMIA [None]
  - INCOHERENT [None]
  - PERSECUTORY DELUSION [None]
  - PSYCHOMOTOR SKILLS IMPAIRED [None]
  - SUICIDAL IDEATION [None]
